FAERS Safety Report 5067164-0 (Version None)
Quarter: 2006Q3

REPORT INFORMATION
  Report Type: 
  Country: None (occurrence: None)
  Receive Date: 20060801
  Receipt Date: 20060523
  Transmission Date: 20061208
  Serious: Yes (Hospitalization)
  Sender: FDA-Public Use
  Company Number: US-BOEHRINGER INGELHEIM PHARMACEUTICALS, INC.-2006-BP-05831BP

PATIENT
  Sex: Male

DRUGS (12)
  1. SPIRIVA [Suspect]
     Indication: CHRONIC OBSTRUCTIVE PULMONARY DISEASE
     Route: 055
     Dates: start: 20050520
  2. POTASSIUM [Concomitant]
  3. BACTRIM [Concomitant]
  4. FLOMAX [Concomitant]
  5. MICRONASE [Concomitant]
  6. XANAX [Concomitant]
  7. ATENOLOL [Concomitant]
  8. SINGULAIR [Concomitant]
  9. TYLENOL W/ CODEINE [Concomitant]
  10. COMBIVENT [Concomitant]
  11. OXYGEN [Concomitant]
  12. ADVAIR DISKUS 100/50 [Concomitant]

REACTIONS (2)
  - DYSSTASIA [None]
  - SEPSIS [None]
